FAERS Safety Report 12444062 (Version 2)
Quarter: 2016Q3

REPORT INFORMATION
  Report Type: Spontaneous
  Country: US (occurrence: US)
  Receive Date: 20160607
  Receipt Date: 20160912
  Transmission Date: 20161109
  Serious: No
  Sender: FDA-Public Use
  Company Number: US-SA-2016SA082505

PATIENT
  Age: 76 Year
  Sex: Male
  Weight: 63.86 kg

DRUGS (33)
  1. METOPROLOL SUCCINATE. [Concomitant]
     Active Substance: METOPROLOL SUCCINATE
     Dosage: METOPROLOL SUCCINATE ER-75-MG ORAL TABLET. COULD INCREASE SUGAR.
     Route: 048
  2. FISH OIL [Concomitant]
     Active Substance: FISH OIL
     Route: 048
  3. NASACORT [Concomitant]
     Active Substance: TRIAMCINOLONE ACETONIDE
     Dosage: (NASACORT ALLERGY 24HR
     Route: 045
  4. SOLOSTAR [Concomitant]
     Active Substance: DEVICE
     Route: 065
  5. SOLOSTAR [Concomitant]
     Active Substance: DEVICE
     Route: 065
     Dates: start: 201511
  6. ALBUTEROL. [Concomitant]
     Active Substance: ALBUTEROL
     Indication: WHEEZING
     Dosage: 2.5 MG/3 ML NEB SOLN
     Route: 055
  7. ASPIRIN. [Concomitant]
     Active Substance: ASPIRIN
     Dosage: ASPIRIN 81 MG ORAL TABLET. TAKE ONE WITH BREAKFAST AND ONE AT BEDTIME WITH FOOD.
     Route: 048
  8. DIGOXIN. [Concomitant]
     Active Substance: DIGOXIN
     Dosage: 250 MCG (0.25 MG) ORAL TABLET. ONCE A DAY WITH BREAKFAST
     Route: 048
  9. POTASSIUM CHLORIDE. [Concomitant]
     Active Substance: POTASSIUM CHLORIDE
     Dosage: 20 MEQ ORAL TABLET, EXTENDED RELEASE
     Route: 048
  10. SIMVASTATIN. [Concomitant]
     Active Substance: SIMVASTATIN
     Dosage: 40 MG ORAL TABLET
     Route: 048
  11. CHLOR-TRIMETON [Concomitant]
     Active Substance: CHLORPHENIRAMINE MALEATE
     Route: 048
  12. METOLAZONE. [Concomitant]
     Active Substance: METOLAZONE
     Indication: WEIGHT INCREASED
     Dosage: 2.5 MG ORAL TABLET.
     Route: 048
  13. TOUJEO [Suspect]
     Active Substance: INSULIN GLARGINE
     Indication: TYPE 2 DIABETES MELLITUS
     Dosage: DOSE:30 UNIT(S)
     Route: 065
  14. SOLOSTAR [Concomitant]
     Active Substance: DEVICE
     Route: 065
  15. SOLOSTAR [Concomitant]
     Active Substance: DEVICE
     Route: 065
     Dates: start: 201602
  16. NITROSTAT [Concomitant]
     Active Substance: NITROGLYCERIN
     Indication: CHEST PAIN
     Dosage: 0.4 MG SUBLINGUAL TABLET
     Route: 065
  17. TOUJEO [Suspect]
     Active Substance: INSULIN GLARGINE
     Indication: TYPE 2 DIABETES MELLITUS
     Dosage: DOSE:22 UNIT(S)
     Route: 065
  18. TOUJEO [Suspect]
     Active Substance: INSULIN GLARGINE
     Indication: TYPE 2 DIABETES MELLITUS
     Dosage: DOSE:25 UNIT(S)
     Route: 065
  19. TOUJEO [Suspect]
     Active Substance: INSULIN GLARGINE
     Indication: TYPE 2 DIABETES MELLITUS
     Dosage: DOSE:32 UNIT(S)
     Route: 065
     Dates: start: 201602
  20. METFORMIN [Concomitant]
     Active Substance: METFORMIN HYDROCHLORIDE
  21. METOLAZONE. [Concomitant]
     Active Substance: METOLAZONE
     Indication: SWELLING
     Dosage: 2.5 MG ORAL TABLET.
     Route: 048
  22. TOUJEO [Suspect]
     Active Substance: INSULIN GLARGINE
     Indication: TYPE 2 DIABETES MELLITUS
     Dosage: DOSE:36 UNIT(S)
     Route: 065
     Dates: start: 201511
  23. PYRIDOXINE [Concomitant]
     Active Substance: PYRIDOXINE
     Route: 048
  24. ALDACTONE [Concomitant]
     Active Substance: SPIRONOLACTONE
     Dosage: 25 MG ORAL TABLET. TAKE WITH NOON?MEAL., 90 DAY(S)
     Route: 048
  25. SYNTHROID [Concomitant]
     Active Substance: LEVOTHYROXINE SODIUM
     Route: 048
  26. TOUJEO [Suspect]
     Active Substance: INSULIN GLARGINE
     Indication: TYPE 2 DIABETES MELLITUS
     Dosage: DOSE:28 UNIT(S)
     Route: 065
  27. SOLOSTAR [Concomitant]
     Active Substance: DEVICE
     Route: 065
  28. RANEXA [Concomitant]
     Active Substance: RANOLAZINE
     Dosage: 500 MG ORAL TABLET, EXTENDED RELEASE
     Route: 048
  29. ENTRESTO [Concomitant]
     Active Substance: SACUBITRIL\VALSARTAN
     Dosage: 24 MG-26 MG ORAL TABLET?HOLD THIS MEDICATION FOR BLOOD PRESSURE LESS THAN 110 SYSTOLIC,
     Route: 048
  30. DEMADEX [Concomitant]
     Active Substance: TORSEMIDE
     Dosage: TAKE AT 7AM AND 2PM, HOLD?EVENING DOSE IF HIS WEIGHT IS LESS THAN 145
     Route: 048
  31. VITAMIN C [Concomitant]
     Active Substance: ASCORBIC ACID
     Route: 048
  32. PLAVIX [Concomitant]
     Active Substance: CLOPIDOGREL BISULFATE
     Dosage: 75 MG ORAL TABLET. ONCE A DAY WITH BREAKFAST
     Route: 048
  33. SOLOSTAR [Concomitant]
     Active Substance: DEVICE
     Route: 065

REACTIONS (1)
  - Hyperglycaemia [Unknown]

NARRATIVE: CASE EVENT DATE: 20160404
